FAERS Safety Report 8235384-X (Version None)
Quarter: 2012Q1

REPORT INFORMATION
  Report Type: 
  Country: None (occurrence: None)
  Receive Date: 20120326
  Receipt Date: 20120321
  Transmission Date: 20120608
  Serious: Yes (Other)
  Sender: FDA-Public Use
  Company Number: TW-PFIZER INC-2012072796

PATIENT
  Sex: Female

DRUGS (3)
  1. SINEQUAN [Suspect]
     Dosage: 50 MG, 1X/DAY
  2. SINEQUAN [Suspect]
     Dosage: 35 MG, 1X/DAY (HS)
     Route: 048
  3. SINEQUAN [Suspect]
     Dosage: 50 MG, 1X/DAY (HS)
     Route: 048

REACTIONS (6)
  - INSOMNIA [None]
  - DRY EYE [None]
  - ABDOMINAL DISCOMFORT [None]
  - ASTHENOPIA [None]
  - OPTIC ATROPHY [None]
  - OPEN ANGLE GLAUCOMA [None]
